FAERS Safety Report 5958095-X (Version None)
Quarter: 2008Q4

REPORT INFORMATION
  Report Type: 
  Country: None (occurrence: None)
  Receive Date: 20081119
  Receipt Date: 20081112
  Transmission Date: 20090506
  Serious: Yes (Hospitalization)
  Sender: FDA-Public Use
  Company Number: B0546488A

PATIENT
  Age: 67 Year
  Sex: Female

DRUGS (3)
  1. MELPHALAN [Suspect]
     Indication: MULTIPLE MYELOMA
     Dosage: 14MG PER DAY
     Route: 048
     Dates: start: 20080910
  2. PREDNISOLONE [Suspect]
     Indication: MULTIPLE MYELOMA
     Dosage: 69MG PER DAY
     Route: 048
     Dates: start: 20080910
  3. BLINDED TRIAL MEDICATION [Suspect]
     Indication: MULTIPLE MYELOMA
     Dosage: 2CAP PER DAY
     Route: 048
     Dates: start: 20080910

REACTIONS (4)
  - FATIGUE [None]
  - PALLOR [None]
  - PNEUMONIA [None]
  - PRODUCTIVE COUGH [None]
